FAERS Safety Report 8591343-9 (Version None)
Quarter: 2012Q3

REPORT INFORMATION
  Report Type: 
  Country: None (occurrence: None)
  Receive Date: 20120724
  Receipt Date: 20120713
  Transmission Date: 20120928
  Serious: Yes (Hospitalization, Disabling, Other)
  Sender: FDA-Public Use
  Company Number: 2012PROUSA01565

PATIENT
  Age: 70 Year
  Sex: Male
  Weight: 88 kg

DRUGS (19)
  1. CASODEX [Concomitant]
  2. CALTRATE + D (CALCLIUM CARBONATE, COLECALCIDFEROL [Concomitant]
  3. CALTRATE (CALCIUM CARBONATE, COLECALCIFEROL) [Concomitant]
  4. VICODIN [Concomitant]
  5. LEVAQUIN [Concomitant]
  6. DIGOXIN [Concomitant]
  7. LISINOPRIL [Concomitant]
  8. ACETAMINOPHEN [Concomitant]
  9. NOVOLOG [Concomitant]
  10. LANTUS [Concomitant]
  11. TOPROL-XL [Concomitant]
  12. TRICOR [Concomitant]
  13. 3)	DIPHENHYDRAMIN HCL (DIPHENHYDRAMINE HYDROCHLORIDE) [Concomitant]
  14. COUMADIN [Concomitant]
  15. PROVENGE [Suspect]
     Indication: PROSTATE CANCER METASTATIC
     Dosage: 250 ML, SINGLE, INTRAVENOUS
     Route: 042
     Dates: start: 20120514, end: 20120514
  16. PLENDIL [Concomitant]
  17. LIPITOR [Concomitant]
  18. ZOLEDRONIC ACID [Concomitant]
  19. ASPIRIN [Concomitant]

REACTIONS (9)
  - INTERNATIONAL NORMALISED RATIO DECREASED [None]
  - SINUS BRADYCARDIA [None]
  - CAROTID ARTERY STENOSIS [None]
  - CEREBRAL ATROPHY [None]
  - ENCEPHALOPATHY [None]
  - CEREBROVASCULAR ACCIDENT [None]
  - CEREBRAL ISCHAEMIA [None]
  - CAROTID ARTERY DISSECTION [None]
  - LACUNAR INFARCTION [None]
